FAERS Safety Report 5362255-9 (Version None)
Quarter: 2007Q2

REPORT INFORMATION
  Report Type: 
  Country: None (occurrence: None)
  Receive Date: 20070619
  Receipt Date: 20070614
  Transmission Date: 20071010
  Serious: Yes (Death)
  Sender: FDA-Public Use
  Company Number: GB-SANOFI-SYNTHELABO-F01200700756

PATIENT
  Sex: Male
  Weight: 88.5 kg

DRUGS (3)
  1. CAPECITABINE [Suspect]
     Dosage: 1000 MG/M2 BID DAYS 1-14
     Route: 048
     Dates: start: 20070522, end: 20070528
  2. CETUXIMAB [Suspect]
     Dosage: 400 MG/M2 LOADING DOSE FOLLOWED BY A WEEKLY INFUSION OF 250 MG/M2
     Route: 041
     Dates: start: 20070501, end: 20070515
  3. OXALIPLATIN [Suspect]
     Indication: COLORECTAL CANCER METASTATIC
     Dosage: 275 MG
     Route: 042
     Dates: start: 20070522, end: 20070522

REACTIONS (1)
  - SUDDEN DEATH [None]
